FAERS Safety Report 8081147-8 (Version None)
Quarter: 2012Q1

REPORT INFORMATION
  Report Type: 
  Country: None (occurrence: None)
  Receive Date: 20120130
  Receipt Date: 20120123
  Transmission Date: 20120608
  Serious: Yes (Hospitalization)
  Sender: FDA-Public Use
  Company Number: US-GLAXOSMITHKLINE-A0962722A

PATIENT
  Age: 35 Year
  Sex: Female

DRUGS (4)
  1. LAMOTRIGINE [Suspect]
     Indication: CONVULSION
     Dosage: 100MG TWICE PER DAY
     Route: 048
     Dates: start: 20050101
  2. MULTI-VITAMINS [Concomitant]
  3. DILANTIN [Concomitant]
  4. LAMICTAL [Suspect]
     Indication: CONVULSION
     Dosage: 100MG TWICE PER DAY
     Route: 048
     Dates: start: 20041201

REACTIONS (4)
  - URTICARIA [None]
  - AURA [None]
  - MATERNAL EXPOSURE DURING PREGNANCY [None]
  - RASH ERYTHEMATOUS [None]
